FAERS Safety Report 4300878-6 (Version None)
Quarter: 2004Q1

REPORT INFORMATION
  Report Type: 
  Country: None (occurrence: None)
  Receive Date: 20040218
  Receipt Date: 20031111
  Transmission Date: 20041129
  Serious: No
  Sender: FDA-Public Use
  Company Number: 2003-08-3051

PATIENT
  Age: 53 Year
  Sex: Female
  Weight: 52.6173 kg

DRUGS (4)
  1. PEG-INTRON [Suspect]
     Dosage: 80 MCG QWK SUBCUTANEOUS
     Route: 058
     Dates: start: 20011101, end: 20020501
  2. REBETOL [Suspect]
     Dosage: 800 MG QD ORAL
     Route: 048
     Dates: start: 20011101, end: 20020501
  3. MULTI-VITAMINS [Concomitant]
  4. XANAX [Concomitant]

REACTIONS (7)
  - ALOPECIA [None]
  - AMNESIA [None]
  - ARTHRALGIA [None]
  - ASTHENIA [None]
  - DYSLEXIA [None]
  - FATIGUE [None]
  - HAIR COLOUR CHANGES [None]
